FAERS Safety Report 21337574 (Version 2)
Quarter: 2022Q3

REPORT INFORMATION
  Report Type: Spontaneous
  Country: DE (occurrence: DE)
  Receive Date: 20220915
  Receipt Date: 20220925
  Transmission Date: 20221026
  Serious: Yes (Hospitalization, Other)
  Sender: FDA-Public Use
  Company Number: DE-ADRED-04964-04

PATIENT
  Age: 82 Year
  Sex: Female
  Weight: 72 kg

DRUGS (9)
  1. APIXABAN [Suspect]
     Active Substance: APIXABAN
     Indication: Product used for unknown indication
     Dosage: 2.5 MG, 1-0-1-0
     Route: 065
  2. PIPAMPERONE HYDROCHLORIDE [Concomitant]
     Active Substance: PIPAMPERONE HYDROCHLORIDE
     Indication: Product used for unknown indication
     Dosage: 20 MG, 0-0-1-0
     Route: 065
  3. METOCLOPRAMIDE [Concomitant]
     Active Substance: METOCLOPRAMIDE
     Indication: Product used for unknown indication
     Dosage: 10 MG, BEDARF
     Route: 065
  4. Citronensaure/Kaliumcarbonat/Kaliumcitrat [Concomitant]
     Indication: Product used for unknown indication
     Dosage: 1-0-0-0
     Route: 065
  5. METAMIZOL [Concomitant]
     Active Substance: METAMIZOLE SODIUM
     Indication: Product used for unknown indication
     Dosage: 500 MG, BEDARF
     Route: 065
  6. ATORVASTATIN [Concomitant]
     Active Substance: ATORVASTATIN
     Indication: Product used for unknown indication
     Dosage: 20 MG, 0-0-1-0
     Route: 065
  7. PANTOPRAZOLE SODIUM [Concomitant]
     Active Substance: PANTOPRAZOLE SODIUM
     Indication: Product used for unknown indication
     Dosage: 20 MG, 1-0-0-0
     Route: 065
  8. EPLERENONE [Concomitant]
     Active Substance: EPLERENONE
     Indication: Product used for unknown indication
     Dosage: 25 MG, 1-0-0-0
     Route: 065
  9. TORSEMIDE [Concomitant]
     Active Substance: TORSEMIDE
     Indication: Product used for unknown indication
     Dosage: 50 MG, 1-0-0-0
     Route: 065

REACTIONS (12)
  - Dyspnoea [Unknown]
  - Anaemia [Unknown]
  - Pallor [Unknown]
  - Atrial fibrillation [Unknown]
  - Nausea [Unknown]
  - Haematochezia [Unknown]
  - Tachycardia [Unknown]
  - Upper gastrointestinal haemorrhage [Unknown]
  - General physical health deterioration [Unknown]
  - Palpitations [Unknown]
  - Hypertension [Unknown]
  - Renal impairment [Unknown]
